FAERS Safety Report 7938075-5 (Version None)
Quarter: 2011Q4

REPORT INFORMATION
  Report Type: 
  Country: None (occurrence: None)
  Receive Date: 20111123
  Receipt Date: 20111121
  Transmission Date: 20120403
  Serious: Yes (Hospitalization)
  Sender: FDA-Public Use
  Company Number: US-AMGEN-USASP2011061427

PATIENT
  Sex: Female

DRUGS (7)
  1. CYCLOPHOSPHAMIDE [Concomitant]
     Indication: BURKITT'S LYMPHOMA
  2. DOXORUBICIN HCL [Concomitant]
     Indication: BURKITT'S LYMPHOMA
  3. VINCRISTINE [Concomitant]
     Indication: BURKITT'S LYMPHOMA
  4. DEXAMETHASONE [Concomitant]
     Indication: BURKITT'S LYMPHOMA
  5. NEUPOGEN [Suspect]
     Indication: NEUTROPENIA
     Dosage: 300 MUG, QD
  6. NEUPOGEN [Suspect]
  7. NEULASTA [Suspect]
     Indication: CHEMOTHERAPY

REACTIONS (2)
  - DRUG INEFFECTIVE [None]
  - BACK PAIN [None]
